FAERS Safety Report 10600877 (Version 1)
Quarter: 2014Q4

REPORT INFORMATION
  Report Type: Spontaneous
  Country: US (occurrence: None)
  Receive Date: 20141121
  Receipt Date: 20141121
  Transmission Date: 20150529
  Serious: No
  Sender: FDA-Public Use
  Company Number: None

PATIENT
  Age: 53 Year
  Sex: Female

DRUGS (1)
  1. ENBREL [Suspect]
     Active Substance: ETANERCEPT
     Indication: RHEUMATOID ARTHRITIS
     Dosage: ENBREL 50MG PFS, SUB-Q
     Dates: start: 20140625, end: 20141002

REACTIONS (3)
  - Basal cell carcinoma [None]
  - Breast mass [None]
  - Skin cancer [None]

NARRATIVE: CASE EVENT DATE: 20141119
